FAERS Safety Report 20600923 (Version 1)
Quarter: 2022Q1

REPORT INFORMATION
  Report Type: Report from Study
  Country: CA (occurrence: CA)
  Receive Date: 20220316
  Receipt Date: 20220316
  Transmission Date: 20220424
  Serious: Yes (Hospitalization)
  Sender: FDA-Public Use
  Company Number: CA-ABBVIE-22K-028-4315507-00

PATIENT
  Sex: Female

DRUGS (1)
  1. HUMIRA [Suspect]
     Active Substance: ADALIMUMAB
     Indication: Crohn^s disease
     Route: 058
     Dates: start: 20201014

REACTIONS (6)
  - Jejunal perforation [Unknown]
  - Cellulitis [Unknown]
  - Ileal stenosis [Unknown]
  - Gastrointestinal anastomotic stenosis [Unknown]
  - Large intestinal stenosis [Unknown]
  - Colitis [Unknown]
